FAERS Safety Report 6492537-9 (Version None)
Quarter: 2009Q4

REPORT INFORMATION
  Report Type: 
  Country: None (occurrence: None)
  Receive Date: 20091214
  Receipt Date: 20091207
  Transmission Date: 20100525
  Serious: Yes (Other)
  Sender: FDA-Public Use
  Company Number: US-ROCHE-673558

PATIENT
  Sex: Female

DRUGS (3)
  1. CELLCEPT [Suspect]
     Indication: PROPHYLAXIS
     Route: 048
     Dates: start: 20050801, end: 20090101
  2. BACTRIM [Suspect]
     Indication: HERPES ZOSTER
     Route: 065
  3. ACYCLOVIR [Suspect]
     Indication: HERPES ZOSTER
     Route: 065

REACTIONS (3)
  - EYE DISORDER [None]
  - HEPATITIS [None]
  - HERPES ZOSTER [None]
